FAERS Safety Report 9867624 (Version 1)
Quarter: 2014Q1

REPORT INFORMATION
  Report Type: Spontaneous
  Country: US (occurrence: None)
  Receive Date: 20140203
  Receipt Date: 20140203
  Transmission Date: 20141002
  Serious: No
  Sender: FDA-Public Use
  Company Number: None

PATIENT
  Age: 26 Year
  Sex: Female
  Weight: 74.84 kg

DRUGS (1)
  1. DULOXETINE [Suspect]
     Dates: start: 20140116, end: 20140117

REACTIONS (3)
  - Headache [None]
  - Hyperhidrosis [None]
  - Drug effect decreased [None]
